FAERS Safety Report 6461024-6 (Version None)
Quarter: 2009Q4

REPORT INFORMATION
  Report Type: 
  Country: None (occurrence: None)
  Receive Date: 20091130
  Receipt Date: 20091124
  Transmission Date: 20100525
  Serious: Yes (Hospitalization)
  Sender: FDA-Public Use
  Company Number: A0832044A

PATIENT
  Age: 63 Year
  Sex: Female

DRUGS (1)
  1. AVANDIA [Suspect]
     Dosage: 8MG PER DAY
     Route: 048
     Dates: start: 20060201, end: 20070601

REACTIONS (4)
  - BLINDNESS [None]
  - CARDIAC DISORDER [None]
  - EYE INJURY [None]
  - MYOCARDIAL INFARCTION [None]
